FAERS Safety Report 7006316-7 (Version None)
Quarter: 2010Q3

REPORT INFORMATION
  Report Type: 
  Country: None (occurrence: None)
  Receive Date: 20100921
  Receipt Date: 20100910
  Transmission Date: 20110219
  Serious: Yes (Other)
  Sender: FDA-Public Use
  Company Number: GB-WYE-G06664610

PATIENT
  Age: 70 Year
  Sex: Male

DRUGS (2)
  1. EFFEXOR XR [Suspect]
     Indication: ANXIETY
     Dosage: 75MG, FREQUENCY UNSPECIFIED
  2. EFFEXOR XR [Suspect]
     Indication: DEPRESSION
     Dosage: 75MG, FREQUENCY UNSPECIFED
     Route: 048

REACTIONS (8)
  - ABNORMAL DREAMS [None]
  - ANXIETY [None]
  - CONDITION AGGRAVATED [None]
  - DIZZINESS [None]
  - DRUG WITHDRAWAL SYNDROME [None]
  - FEELING ABNORMAL [None]
  - NAUSEA [None]
  - NERVOUSNESS [None]
